FAERS Safety Report 7532582-5 (Version None)
Quarter: 2011Q2

REPORT INFORMATION
  Report Type: 
  Country: None (occurrence: None)
  Receive Date: 20110608
  Receipt Date: 20110528
  Transmission Date: 20111010
  Serious: Yes (Other)
  Sender: FDA-Public Use
  Company Number: PHHY2011DE48292

PATIENT

DRUGS (1)
  1. CLOZAPINE [Suspect]
     Indication: PSYCHOTIC DISORDER

REACTIONS (8)
  - CARDIAC DISORDER [None]
  - EOSINOPHILIA [None]
  - MYOCARDITIS [None]
  - C-REACTIVE PROTEIN INCREASED [None]
  - COMPLEMENT FACTOR C3 INCREASED [None]
  - ALPHA TUMOUR NECROSIS FACTOR INCREASED [None]
  - VENTRICULAR DYSKINESIA [None]
  - INTERLEUKIN LEVEL INCREASED [None]
